FAERS Safety Report 9777933 (Version 1)
Quarter: 2013Q4

REPORT INFORMATION
  Report Type: Report from Study
  Country: CN (occurrence: CN)
  Receive Date: 20131223
  Receipt Date: 20131223
  Transmission Date: 20140711
  Serious: Yes (Hospitalization)
  Sender: FDA-Public Use
  Company Number: CN-ROCHE-1319676

PATIENT
  Age: 4 Month
  Sex: Female

DRUGS (4)
  1. CEFTRIAXONE SODIUM [Suspect]
     Indication: PRODUCT USED FOR UNKNOWN INDICATION
     Route: 042
  2. DEXAMETHASONE [Concomitant]
  3. TOPIRAMATE [Concomitant]
  4. MANNITOL [Concomitant]

REACTIONS (2)
  - Pyrexia [Recovered/Resolved]
  - Muscle spasms [Recovered/Resolved]
